FAERS Safety Report 14233594 (Version 2)
Quarter: 2017Q4

REPORT INFORMATION
  Report Type: Spontaneous
  Country: HK (occurrence: HK)
  Receive Date: 20171129
  Receipt Date: 20171212
  Transmission Date: 20180321
  Serious: Yes (Death, Hospitalization, Other)
  Sender: FDA-Public Use
  Company Number: HK-ROCHE-2026645

PATIENT
  Age: 38 Year
  Sex: Male

DRUGS (1)
  1. ATEZOLIZUMAB. [Suspect]
     Active Substance: ATEZOLIZUMAB
     Indication: LUNG ADENOCARCINOMA
     Dosage: THIRD INJECTION ON 29/SEP/2017?FOURTH INJECTION ON 24/OCT/2017
     Route: 042
     Dates: start: 20170720

REACTIONS (13)
  - Nausea [Unknown]
  - Blood follicle stimulating hormone decreased [Unknown]
  - Blood thyroid stimulating hormone decreased [Unknown]
  - Brain death [Fatal]
  - Vomiting [Unknown]
  - Blood luteinising hormone decreased [Unknown]
  - Blood prolactin decreased [Unknown]
  - Thyroxine decreased [Unknown]
  - Cortisol decreased [Unknown]
  - Seizure [Unknown]
  - Dizziness [Unknown]
  - Seizure [Fatal]
  - Headache [Unknown]

NARRATIVE: CASE EVENT DATE: 20171026
